FAERS Safety Report 6593809-X (Version None)
Quarter: 2010Q1

REPORT INFORMATION
  Report Type: 
  Country: None (occurrence: None)
  Receive Date: 20100212
  Receipt Date: 20100203
  Transmission Date: 20100710
  Serious: Yes (Other)
  Sender: FDA-Public Use
  Company Number: 2010SP006771

PATIENT
  Age: 25 Year
  Sex: Male

DRUGS (2)
  1. POSACONAZOLE [Suspect]
     Indication: FUNGAL INFECTION
     Dates: start: 20090701, end: 20091001
  2. VORICONAZOLE [Suspect]
     Indication: FUNGAL INFECTION
     Dates: start: 20070801

REACTIONS (5)
  - EPHELIDES [None]
  - FUNGAL INFECTION [None]
  - PHOTOSENSITIVITY REACTION [None]
  - SQUAMOUS CELL CARCINOMA [None]
  - SUNBURN [None]
